FAERS Safety Report 5338006-0 (Version None)
Quarter: 2007Q2

REPORT INFORMATION
  Report Type: 
  Country: None (occurrence: None)
  Receive Date: 20070530
  Receipt Date: 20070525
  Transmission Date: 20071010
  Serious: Yes (Life-Threatening, Hospitalization)
  Sender: FDA-Public Use
  Company Number: PHBS2005BR17152

PATIENT
  Age: 51 Year
  Sex: Female
  Weight: 62 kg

DRUGS (2)
  1. LOCOL [Suspect]
     Indication: BLOOD CHOLESTEROL
     Dosage: 80 MG, QHS
     Route: 048
     Dates: start: 20050820, end: 20050902
  2. EUTHYROX [Concomitant]
     Indication: HYPOTHYROIDISM
     Dosage: 75 UG/DAY

REACTIONS (4)
  - ABDOMINAL PAIN [None]
  - APPENDICITIS [None]
  - MYALGIA [None]
  - SURGERY [None]
